FAERS Safety Report 8307978-4 (Version None)
Quarter: 2012Q2

REPORT INFORMATION
  Report Type: 
  Country: None (occurrence: None)
  Receive Date: 20120424
  Receipt Date: 20120416
  Transmission Date: 20120825
  Serious: Yes (Hospitalization)
  Sender: FDA-Public Use
  Company Number: US-GLAXOSMITHKLINE-A0974650A

PATIENT
  Age: 34 Year
  Sex: Female
  Weight: 145.1 kg

DRUGS (21)
  1. PROTONIX [Concomitant]
     Dosage: 40MGD PER DAY
  2. HUMALOG [Concomitant]
     Route: 058
  3. SYNTHROID [Concomitant]
     Dosage: 50MCG PER DAY
  4. TEGADERM [Suspect]
  5. CYMBALTA [Concomitant]
     Dosage: 60MGD PER DAY
  6. LANTUS [Concomitant]
     Dosage: 25UNIT AT NIGHT
     Route: 058
  7. LASIX [Concomitant]
     Dosage: 40MGD PER DAY
  8. ZOFRAN [Concomitant]
     Dosage: 4MG AS REQUIRED
  9. REGLAN [Concomitant]
     Dosage: 5MGD PER DAY
  10. COUMADIN [Concomitant]
     Dosage: 5MGD PER DAY
  11. ASPIRIN [Concomitant]
     Dosage: 325MGD PER DAY
  12. IMODIUM [Concomitant]
     Dosage: 2MG AS REQUIRED
  13. BISMUTH SUBSALICYLATE [Concomitant]
     Dosage: 30ML AS REQUIRED
     Route: 048
  14. MULTI-VITAMIN [Concomitant]
     Dosage: 1TAB PER DAY
     Route: 048
  15. LEXAPRO [Concomitant]
     Dosage: 20MGD PER DAY
  16. FISH OIL [Concomitant]
     Dosage: 1000MGD PER DAY
  17. CHLORAPREP [Suspect]
  18. ACETAMINOPHEN [Concomitant]
     Dosage: 650MG PER DAY
  19. FLOLAN [Suspect]
     Indication: PULMONARY ARTERIAL HYPERTENSION
     Dosage: 9.25NGKM UNKNOWN
     Route: 042
     Dates: start: 20120410
  20. NEURONTIN [Concomitant]
     Dosage: 100MG AS REQUIRED
  21. SYMBICORT [Concomitant]
     Dosage: 2PUFF TWICE PER DAY
     Route: 055

REACTIONS (6)
  - CATHETER SITE RASH [None]
  - INFUSION SITE PAIN [None]
  - PURULENT DISCHARGE [None]
  - CATHETER SITE SWELLING [None]
  - DEVICE RELATED INFECTION [None]
  - CATHETER SITE INFLAMMATION [None]
